FAERS Safety Report 6243690-3 (Version None)
Quarter: 2009Q2

REPORT INFORMATION
  Report Type: 
  Country: None (occurrence: None)
  Receive Date: 20090624
  Receipt Date: 20090624
  Transmission Date: 20091009
  Serious: Yes (Other)
  Sender: FDA-Public Use
  Company Number: US-PFIZER INC-2009196916

PATIENT
  Sex: Female

DRUGS (9)
  1. LYRICA [Suspect]
     Indication: PAIN
  2. MOMETASONE [Concomitant]
  3. CARAFATE [Concomitant]
  4. FENTANYL [Concomitant]
  5. IRON [Concomitant]
  6. ALL OTHER THERAPEUTIC PRODUCTS [Concomitant]
  7. NEXIUM [Concomitant]
  8. METHYLENE BLUE [Concomitant]
  9. OXYMORPHONE [Concomitant]

REACTIONS (2)
  - BLOOD CREATINE PHOSPHOKINASE INCREASED [None]
  - MYOSITIS [None]
